FAERS Safety Report 6191746-6 (Version None)
Quarter: 2009Q2

REPORT INFORMATION
  Report Type: 
  Country: None (occurrence: None)
  Receive Date: 20090515
  Receipt Date: 20090507
  Transmission Date: 20091009
  Serious: Yes (Other)
  Sender: FDA-Public Use
  Company Number: GB-PFIZER INC-2009209236

PATIENT
  Age: 28 Year

DRUGS (3)
  1. CHAMPIX [Suspect]
     Indication: SMOKING CESSATION THERAPY
     Dosage: UNK
     Route: 048
     Dates: start: 20090403
  2. DESOGESTREL [Concomitant]
     Dosage: 75 UG, 1X/DAY
  3. NIQUITIN [Suspect]
     Dosage: 14 MG, 1X/DAY
     Route: 062

REACTIONS (2)
  - INTENTIONAL OVERDOSE [None]
  - SUICIDAL BEHAVIOUR [None]
